FAERS Safety Report 19844160 (Version 1)
Quarter: 2021Q3

REPORT INFORMATION
  Report Type: Spontaneous
  Country: IT (occurrence: IT)
  Receive Date: 20210916
  Receipt Date: 20210916
  Transmission Date: 20211014
  Serious: Yes (Other)
  Sender: FDA-Public Use
  Company Number: IT-MYLANLABS-2021M1062473

PATIENT
  Age: 23 Year
  Sex: Female

DRUGS (5)
  1. BISOPROLOL [Suspect]
     Active Substance: BISOPROLOL
     Indication: ATRIAL TACHYCARDIA
     Dosage: DOSE INCREASED IN 2019 AND STOPPED IN
     Dates: end: 202001
  2. FLECAINIDE MYLAN [Suspect]
     Active Substance: FLECAINIDE ACETATE
     Dosage: LOW DOSE (UNSPECIFIED) STARTED IN 2013
     Dates: start: 2013, end: 2015
  3. BISOPROLOL [Suspect]
     Active Substance: BISOPROLOL
     Dosage: DOSE INCREASED IN JAN 2020
     Dates: end: 202103
  4. BISOPROLOL [Suspect]
     Active Substance: BISOPROLOL
     Dosage: STARTED IN 2015
     Dates: end: 2019
  5. FLECAINIDE MYLAN [Suspect]
     Active Substance: FLECAINIDE ACETATE
     Indication: ATRIAL TACHYCARDIA
     Dosage: REINTRODUCED IN 2019

REACTIONS (8)
  - Heart rate increased [Unknown]
  - Malaise [Recovered/Resolved]
  - Pain in extremity [Unknown]
  - Cough [Not Recovered/Not Resolved]
  - Therapeutic response decreased [Unknown]
  - Dyspnoea at rest [Not Recovered/Not Resolved]
  - Off label use [Unknown]
  - Muscular weakness [Not Recovered/Not Resolved]

NARRATIVE: CASE EVENT DATE: 2013
